FAERS Safety Report 23693544 (Version 2)
Quarter: 2024Q2

REPORT INFORMATION
  Report Type: Spontaneous
  Country: FI (occurrence: FI)
  Receive Date: 20240401
  Receipt Date: 20240422
  Transmission Date: 20240716
  Serious: Yes (Other)
  Sender: FDA-Public Use
  Company Number: FI-ABBVIE-5699937

PATIENT
  Age: 39 Year
  Sex: Male

DRUGS (9)
  1. RINVOQ [Suspect]
     Active Substance: UPADACITINIB
     Indication: Crohn^s disease
     Dosage: 45 MILLIGRAM?FORM STRENGTH: 45 MILLIGRAM
     Route: 048
     Dates: start: 20240314, end: 20240321
  2. RINVOQ [Suspect]
     Active Substance: UPADACITINIB
     Indication: Crohn^s disease
     Dosage: 45 MILLIGRAM?FORM STRENGTH: 45 MILLIGRAM?STOP DATE: DEC 2023
     Route: 048
     Dates: start: 20231215
  3. Cardace [Concomitant]
     Indication: Product used for unknown indication
  4. OXAZEPAM [Concomitant]
     Active Substance: OXAZEPAM
     Indication: Product used for unknown indication
     Dosage: TIME INTERVAL: AS NECESSARY: AS NEEDED
  5. BISOPROLOL [Concomitant]
     Active Substance: BISOPROLOL\BISOPROLOL FUMARATE
     Indication: Product used for unknown indication
     Dosage: DOSE: 2.5 MG
  6. STELARA [Concomitant]
     Active Substance: USTEKINUMAB
     Indication: Product used for unknown indication
     Route: 058
  7. PANADOL [Concomitant]
     Active Substance: ACETAMINOPHEN
     Indication: Product used for unknown indication
     Dosage: TIME INTERVAL: AS NECESSARY: AS NEEDED
  8. MELATONIN [Concomitant]
     Active Substance: MELATONIN
     Indication: Product used for unknown indication
     Dosage: TIME INTERVAL: AS NECESSARY: AS NEEDED
  9. LERCANIDIPINE HYDROCHLORIDE [Concomitant]
     Active Substance: LERCANIDIPINE HYDROCHLORIDE
     Indication: Product used for unknown indication

REACTIONS (7)
  - Gingivitis [Unknown]
  - Headache [Unknown]
  - Malaise [Recovered/Resolved]
  - Malaise [Unknown]
  - Headache [Recovered/Resolved]
  - Dizziness [Unknown]
  - Therapy cessation [Unknown]

NARRATIVE: CASE EVENT DATE: 20231201
